FAERS Safety Report 8053513-8 (Version None)
Quarter: 2012Q1

REPORT INFORMATION
  Report Type: 
  Country: None (occurrence: None)
  Receive Date: 20120118
  Receipt Date: 20120105
  Transmission Date: 20120608
  Serious: Yes (Hospitalization)
  Sender: FDA-Public Use
  Company Number: GB-VERTEX PHARMACEUTICALS INC.-000000000000000091

PATIENT
  Age: 60 Year
  Sex: Male

DRUGS (10)
  1. COPEGUS [Suspect]
     Dosage: DOSAGE FORM: TABLET
     Route: 048
     Dates: start: 20090515, end: 20090605
  2. COPEGUS [Suspect]
     Indication: HEPATITIS C
     Dosage: DOSAGE FORM: TABLET
     Route: 048
     Dates: start: 20090119, end: 20090318
  3. COPEGUS [Suspect]
     Dosage: DOSAGE FORM: TABLET
     Route: 048
     Dates: start: 20090606, end: 20090612
  4. PEGASYS [Suspect]
     Indication: HEPATITIS C
     Dosage: DOSAGE FORM: INJECTION
     Route: 058
     Dates: start: 20090119, end: 20091221
  5. COPEGUS [Suspect]
     Dosage: DOSAGE FORM: TABLET
     Route: 048
     Dates: start: 20090423, end: 20090511
  6. COPEGUS [Suspect]
     Dosage: DOSAGE FORM: TABLET
     Route: 048
     Dates: start: 20090613, end: 20090701
  7. TELAPREVIR [Suspect]
     Indication: HEPATITIS C
     Dosage: DOSAGE FORM: TABLET
     Route: 048
     Dates: start: 20090217, end: 20090511
  8. COPEGUS [Suspect]
     Dosage: DOSAGE FORM: TABLET
     Route: 048
     Dates: start: 20090702, end: 20091221
  9. COPEGUS [Suspect]
     Dosage: DOSAGE FORM: TABLET
     Route: 048
     Dates: start: 20090512, end: 20090514
  10. COPEGUS [Suspect]
     Dosage: DOSAGE FORM: TABLET
     Route: 048
     Dates: start: 20090319, end: 20090402

REACTIONS (1)
  - INJECTION SITE THROMBOSIS [None]
